FAERS Safety Report 16354867 (Version 1)
Quarter: 2019Q2

REPORT INFORMATION
  Report Type: Report from Study
  Country: CA (occurrence: CA)
  Receive Date: 20190524
  Receipt Date: 20190524
  Transmission Date: 20190711
  Serious: Yes (Death, Other)
  Sender: FDA-Public Use
  Company Number: CA-APOPHARMA-2013AP003946

PATIENT
  Sex: Female
  Weight: 80 kg

DRUGS (4)
  1. DEFERIPRONE [Suspect]
     Active Substance: DEFERIPRONE
     Indication: IRON OVERLOAD
  2. EXJADE [Concomitant]
     Active Substance: DEFERASIROX
     Dosage: 10.8 MG/KG, QD
     Route: 048
  3. DEFERIPRONE [Suspect]
     Active Substance: DEFERIPRONE
     Indication: THALASSAEMIA BETA
     Dosage: 89.7 MG/KG, QD
     Route: 048
     Dates: start: 20120402
  4. NAPROSYN [Concomitant]
     Active Substance: NAPROXEN
     Indication: ARTHRALGIA
     Route: 048

REACTIONS (2)
  - Agranulocytosis [Fatal]
  - Pyrexia [Unknown]
